FAERS Safety Report 4859848-1 (Version None)
Quarter: 2005Q4

REPORT INFORMATION
  Report Type: 
  Country: None (occurrence: None)
  Receive Date: 20051214
  Receipt Date: 20051130
  Transmission Date: 20060501
  Serious: Yes (Hospitalization)
  Sender: FDA-Public Use
  Company Number: DK200511003274

PATIENT
  Sex: Female

DRUGS (1)
  1. FORTEO [Suspect]
     Dosage: SUBCUTANEOUS
     Route: 058
     Dates: start: 20051001

REACTIONS (1)
  - CHOLECYSTITIS [None]
